FAERS Safety Report 5785873-2 (Version None)
Quarter: 2008Q2

REPORT INFORMATION
  Report Type: 
  Country: None (occurrence: None)
  Receive Date: 20080605
  Receipt Date: 20080226
  Transmission Date: 20081010
  Serious: No
  Sender: FDA-Public Use
  Company Number: A0711789A

PATIENT

DRUGS (1)
  1. ALLI [Suspect]
     Dates: start: 20080203

REACTIONS (2)
  - GASTROINTESTINAL DISORDER [None]
  - THERAPEUTIC RESPONSE UNEXPECTED [None]
